FAERS Safety Report 16912939 (Version 1)
Quarter: 2019Q4

REPORT INFORMATION
  Report Type: Spontaneous
  Country: DE (occurrence: DE)
  Receive Date: 20191014
  Receipt Date: 20191014
  Transmission Date: 20200122
  Serious: Yes (Hospitalization)
  Sender: FDA-Public Use
  Company Number: DE-ROCHE-2433381

PATIENT
  Age: 55 Year
  Sex: Female
  Weight: 77 kg

DRUGS (2)
  1. PERJETA [Suspect]
     Active Substance: PERTUZUMAB
     Indication: HER-2 POSITIVE BREAST CANCER
     Route: 042
     Dates: start: 20190814
  2. KANJINTI [Suspect]
     Active Substance: TRASTUZUMAB-ANNS
     Indication: HER-2 POSITIVE BREAST CANCER
     Route: 042
     Dates: start: 20190814

REACTIONS (3)
  - Nausea [Unknown]
  - Body temperature increased [Unknown]
  - Chills [Unknown]

NARRATIVE: CASE EVENT DATE: 20190814
